FAERS Safety Report 21624642 (Version 1)
Quarter: 2022Q4

REPORT INFORMATION
  Report Type: Report from Study
  Country: US (occurrence: US)
  Receive Date: 20221121
  Receipt Date: 20221121
  Transmission Date: 20230112
  Serious: No
  Sender: FDA-Public Use
  Company Number: US-ABBVIE-4191488

PATIENT
  Sex: Male

DRUGS (4)
  1. HUMIRA [Suspect]
     Active Substance: ADALIMUMAB
     Indication: Psoriasis
     Dosage: 40 MG
     Route: 058
  2. HUMIRA [Suspect]
     Active Substance: ADALIMUMAB
     Indication: Psoriatic arthropathy
  3. PFIZER-BIONTECH COVID-19 VACCINE [Concomitant]
     Active Substance: TOZINAMERAN
     Indication: COVID-19 immunisation
     Route: 030
  4. PFIZER-BIONTECH COVID-19 VACCINE [Concomitant]
     Active Substance: TOZINAMERAN
     Indication: COVID-19 immunisation
     Dosage: BOOSTER DOSE
     Route: 030

REACTIONS (14)
  - Fall [Recovering/Resolving]
  - Injection site bruising [Recovered/Resolved]
  - COVID-19 [Recovered/Resolved with Sequelae]
  - Groin pain [Unknown]
  - Spinal pain [Unknown]
  - Injection site injury [Recovered/Resolved]
  - Bone contusion [Unknown]
  - Rotator cuff syndrome [Recovering/Resolving]
  - Limb injury [Recovering/Resolving]
  - Skin abrasion [Unknown]
  - Weight decreased [Unknown]
  - Muscle atrophy [Unknown]
  - Arthralgia [Unknown]
  - Joint swelling [Unknown]
